FAERS Safety Report 7216329-8 (Version None)
Quarter: 2011Q1

REPORT INFORMATION
  Report Type: 
  Country: None (occurrence: None)
  Receive Date: 20110105
  Receipt Date: 20110105
  Transmission Date: 20110831
  Serious: Yes (Other)
  Sender: FDA-Public Use
  Company Number: None

PATIENT
  Sex: Female
  Weight: 63.5036 kg

DRUGS (1)
  1. LATISSE [Suspect]
     Indication: MADAROSIS
     Dosage: DROPS NIGHTLY ON LASH APP. EVERY OUTDATED
     Dates: start: 20090101

REACTIONS (2)
  - SKIN DISCOLOURATION [None]
  - PRODUCT COUNTERFEIT [None]
